FAERS Safety Report 14597200 (Version 2)
Quarter: 2018Q2

REPORT INFORMATION
  Report Type: Spontaneous
  Country: US (occurrence: US)
  Receive Date: 20180305
  Receipt Date: 20180402
  Transmission Date: 20180711
  Serious: Yes (Disabling)
  Sender: FDA-Public Use
  Company Number: US-BRISTOL-MYERS SQUIBB COMPANY-BMS-2018-020247

PATIENT
  Sex: Female
  Weight: 68.3 kg

DRUGS (1)
  1. ELIQUIS [Suspect]
     Active Substance: APIXABAN
     Indication: CEREBROVASCULAR ACCIDENT PROPHYLAXIS
     Dosage: 5 MG, BID
     Route: 048

REACTIONS (6)
  - Arthralgia [Unknown]
  - Weight increased [Unknown]
  - Pain in extremity [Unknown]
  - Gait disturbance [Unknown]
  - Joint swelling [Unknown]
  - Muscle spasms [Unknown]
